FAERS Safety Report 5090847-3 (Version None)
Quarter: 2006Q3

REPORT INFORMATION
  Report Type: 
  Country: None (occurrence: None)
  Receive Date: 20060823
  Receipt Date: 20060808
  Transmission Date: 20061208
  Serious: Yes (Other)
  Sender: FDA-Public Use
  Company Number: PHNR2006AU01016

PATIENT
  Age: 2 Year
  Sex: Female

DRUGS (1)
  1. LAMISIL [Suspect]
     Indication: TINEA INFECTION
     Dosage: 2-3 TIMES DAILY, TOPICAL
     Route: 061
     Dates: start: 20060805, end: 20060807

REACTIONS (6)
  - DIARRHOEA [None]
  - INTENTIONAL DRUG MISUSE [None]
  - LETHARGY [None]
  - PYREXIA [None]
  - RASH [None]
  - VOMITING [None]
